FAERS Safety Report 5907289-8 (Version None)
Quarter: 2008Q4

REPORT INFORMATION
  Report Type: 
  Country: None (occurrence: None)
  Receive Date: 20081003
  Receipt Date: 20080924
  Transmission Date: 20090506
  Serious: Yes (Other)
  Sender: FDA-Public Use
  Company Number: JP-AVENTIS-200812998JP

PATIENT
  Age: 83 Year
  Sex: Female
  Weight: 59 kg

DRUGS (10)
  1. FUROSEMIDE [Suspect]
     Route: 048
     Dates: start: 20071001
  2. CIPRALAN [Suspect]
     Indication: ARRHYTHMIA
     Route: 048
     Dates: start: 20070901
  3. CANDESARTAN [Concomitant]
  4. NIFEDIPINE [Concomitant]
  5. WARFARIN SODIUM [Concomitant]
  6. VERAPAMIL HYDROCHLORIDE [Concomitant]
     Dates: start: 20070901
  7. SPIRONOLACTONE [Concomitant]
     Dates: start: 20071001
  8. PILSICAINIDE HYDROCHLORIDE [Concomitant]
  9. PILSICAINIDE HYDROCHLORIDE [Concomitant]
  10. GLUCOSE [Concomitant]
     Route: 042

REACTIONS (12)
  - ANOREXIA [None]
  - BLOOD INSULIN INCREASED [None]
  - DEHYDRATION [None]
  - DRUG LEVEL INCREASED [None]
  - EPIGASTRIC DISCOMFORT [None]
  - HYPOGLYCAEMIA [None]
  - HYPOPHAGIA [None]
  - INSULIN C-PEPTIDE INCREASED [None]
  - MALAISE [None]
  - NAUSEA [None]
  - RENAL IMPAIRMENT [None]
  - VOMITING [None]
